FAERS Safety Report 7069257-5 (Version None)
Quarter: 2010Q4

REPORT INFORMATION
  Report Type: 
  Country: None (occurrence: None)
  Receive Date: 20101028
  Receipt Date: 20101014
  Transmission Date: 20110411
  Serious: Yes (Other)
  Sender: FDA-Public Use
  Company Number: GB-AMGEN-GBRCT2010000110

PATIENT

DRUGS (2)
  1. ETANERCEPT [Suspect]
     Indication: RHEUMATOID ARTHRITIS
     Dosage: 25 MG, 2 TIMES/WK
     Route: 058
     Dates: start: 20040301, end: 20040615
  2. METHOTREXATE [Concomitant]
     Dosage: UNKNOWN
     Dates: start: 20041215

REACTIONS (1)
  - LUNG SQUAMOUS CELL CARCINOMA STAGE II [None]
